FAERS Safety Report 10731943 (Version 1)
Quarter: 2015Q1

REPORT INFORMATION
  Report Type: Spontaneous
  Country: KP (occurrence: KP)
  Receive Date: 20150123
  Receipt Date: 20150123
  Transmission Date: 20150721
  Serious: Yes (Death, Other)
  Sender: FDA-Public Use
  Company Number: KP-CIPLA LTD.-2015KP00441

PATIENT

DRUGS (2)
  1. ZIDOVUDINE. [Suspect]
     Active Substance: ZIDOVUDINE
  2. KOREAN RED GINSENG [Suspect]
     Active Substance: DIETARY SUPPLEMENT
     Dosage: 600 G
     Dates: start: 199405

REACTIONS (5)
  - Drug resistance [Unknown]
  - Pneumonia [Fatal]
  - Arthritis helminthic [Unknown]
  - Palmar erythema [Unknown]
  - Haematoma [Recovered/Resolved]

NARRATIVE: CASE EVENT DATE: 198702
